FAERS Safety Report 5117280-X (Version None)
Quarter: 2006Q3

REPORT INFORMATION
  Report Type: 
  Country: None (occurrence: None)
  Receive Date: 20060926
  Receipt Date: 20060912
  Transmission Date: 20061208
  Serious: Yes (Hospitalization)
  Sender: FDA-Public Use
  Company Number: 2006PV021081

PATIENT
  Age: 79 Year
  Sex: Male
  Weight: 94.3482 kg

DRUGS (6)
  1. BYETTA [Suspect]
     Indication: DIABETES MELLITUS NON-INSULIN-DEPENDENT
     Dosage: 10 + 5 MCG; BID; SC
     Route: 058
     Dates: start: 20060301, end: 20060401
  2. BYETTA [Suspect]
     Indication: DIABETES MELLITUS NON-INSULIN-DEPENDENT
     Dosage: 10 + 5 MCG; BID; SC
     Route: 058
     Dates: start: 20060401
  3. COREG [Concomitant]
  4. ACTOS [Concomitant]
  5. AMARYL [Concomitant]
  6. FUROSEMIDE [Concomitant]

REACTIONS (7)
  - CORONARY ARTERY OCCLUSION [None]
  - DECREASED APPETITE [None]
  - DRUG INEFFECTIVE [None]
  - INCISION SITE COMPLICATION [None]
  - MITRAL VALVE DISEASE [None]
  - POSTOPERATIVE WOUND INFECTION [None]
  - WEIGHT DECREASED [None]
